FAERS Safety Report 15772011 (Version 1)
Quarter: 2018Q4

REPORT INFORMATION
  Report Type: Report from Study
  Country: ES (occurrence: ES)
  Receive Date: 20181228
  Receipt Date: 20181228
  Transmission Date: 20190205
  Serious: Yes (Other)
  Sender: FDA-Public Use
  Company Number: ES-SA-2017SA035078

PATIENT
  Sex: Male
  Weight: 90 kg

DRUGS (3)
  1. METFORMIN [Concomitant]
     Active Substance: METFORMIN HYDROCHLORIDE
     Indication: DIABETES MELLITUS
     Dosage: UNK UNK,BID
     Route: 048
     Dates: start: 20070228
  2. INSULIN GLARGINE [Suspect]
     Active Substance: INSULIN GLARGINE
     Indication: DIABETES MELLITUS
     Dosage: 70 IU,QD
     Route: 058
     Dates: start: 20160801
  3. INNOLET R [Concomitant]
     Indication: DIABETES MELLITUS
     Dosage: UNK UNK,BID
     Route: 058
     Dates: start: 20160801

REACTIONS (2)
  - Retinal detachment [Not Recovered/Not Resolved]
  - Visual impairment [Not Recovered/Not Resolved]
